FAERS Safety Report 6396553-7 (Version None)
Quarter: 2009Q4

REPORT INFORMATION
  Report Type: 
  Country: None (occurrence: None)
  Receive Date: 20091012
  Receipt Date: 20090929
  Transmission Date: 20100525
  Serious: Yes (Hospitalization)
  Sender: FDA-Public Use
  Company Number: US-JNJFOC-20060304849

PATIENT
  Age: 53 Year
  Sex: Male

DRUGS (1)
  1. INFLIXIMAB [Suspect]
     Indication: CROHN'S DISEASE
     Dosage: 500 MG EVERY 6-8 WEEKS FOR 18 MONTHS
     Route: 042

REACTIONS (1)
  - HISTOPLASMOSIS DISSEMINATED [None]
